FAERS Safety Report 14078187 (Version 1)
Quarter: 2017Q4

REPORT INFORMATION
  Report Type: Spontaneous
  Country: US (occurrence: None)
  Receive Date: 20171012
  Receipt Date: 20171012
  Transmission Date: 20180321
  Serious: No
  Sender: FDA-Public Use
  Company Number: None

PATIENT

DRUGS (1)
  1. CEFTIN [Suspect]
     Active Substance: CEFUROXIME AXETIL
     Dosage: BOTTLE
     Route: 048

REACTIONS (4)
  - Product packaging confusion [None]
  - Accidental underdose [None]
  - Drug dispensing error [None]
  - Product preparation error [None]
